FAERS Safety Report 10513325 (Version 3)
Quarter: 2014Q4

REPORT INFORMATION
  Report Type: Report from Study
  Country: US (occurrence: US)
  Receive Date: 20141013
  Receipt Date: 20141111
  Transmission Date: 20150528
  Serious: Yes (Other)
  Sender: FDA-Public Use
  Company Number: PHEH2014US019902

PATIENT
  Sex: Male
  Weight: 96.15 kg

DRUGS (2)
  1. ILARIS [Suspect]
     Active Substance: CANAKINUMAB
     Indication: RHEUMATOID ARTHRITIS
     Dosage: 150 MG, EVERY 8 WEEKS
     Route: 058
     Dates: start: 20140805, end: 20140816
  2. ILARIS [Suspect]
     Active Substance: CANAKINUMAB
     Indication: CRYOPYRIN ASSOCIATED PERIODIC SYNDROME

REACTIONS (2)
  - Infection [Unknown]
  - Peripheral swelling [Unknown]
